FAERS Safety Report 7421818-7 (Version None)
Quarter: 2011Q2

REPORT INFORMATION
  Report Type: 
  Country: None (occurrence: None)
  Receive Date: 20110418
  Receipt Date: 20110411
  Transmission Date: 20111010
  Serious: Yes (Other)
  Sender: FDA-Public Use
  Company Number: US-B.I. PHARMACEUTICALS,INC./RIDGEFIELD-2011-BP-03794BP

PATIENT
  Sex: Male

DRUGS (9)
  1. LORATADINE [Concomitant]
     Dosage: 10 MG
  2. PRADAXA [Suspect]
     Indication: ANTICOAGULANT THERAPY
  3. ASPIRIN [Concomitant]
     Indication: ATRIAL FIBRILLATION
     Dosage: 81 MG
  4. HYDROCODONE [Concomitant]
  5. METOPROLOL [Concomitant]
     Dosage: 100 MG
  6. DIOVAN HCT [Concomitant]
     Indication: HYPERTENSION
  7. CARISOPRODOL [Concomitant]
  8. PRADAXA [Suspect]
     Indication: ATRIAL FIBRILLATION
     Dosage: 300 MG
     Route: 048
     Dates: start: 20110101
  9. DEXILANT [Concomitant]
     Indication: FLATULENCE
     Dosage: 60 MG

REACTIONS (4)
  - FLATULENCE [None]
  - CHEST PAIN [None]
  - ABDOMINAL DISCOMFORT [None]
  - HYPERTENSION [None]
